FAERS Safety Report 4469966-8 (Version None)
Quarter: 2004Q3

REPORT INFORMATION
  Report Type: 
  Country: None (occurrence: None)
  Receive Date: 20040920
  Receipt Date: 20040614
  Transmission Date: 20050211
  Serious: No
  Sender: FDA-Public Use
  Company Number: A-US2004-06605

PATIENT
  Sex: Female

DRUGS (1)
  1. TRACLEER [Suspect]
     Indication: PULMONARY HYPERTENSION
     Dosage: 125 MG, ORAL
     Route: 048

REACTIONS (1)
  - OVERDOSE [None]
